FAERS Safety Report 23356045 (Version 2)
Quarter: 2024Q1

REPORT INFORMATION
  Report Type: Report from Study
  Country: US (occurrence: US)
  Receive Date: 20240102
  Receipt Date: 20240225
  Transmission Date: 20240410
  Serious: Yes (Death, Other)
  Sender: FDA-Public Use
  Company Number: US-ACADIA PHARMACEUTICALS INC.-ACA-2023-PIM-005698

PATIENT
  Sex: Female

DRUGS (15)
  1. NUPLAZID [Suspect]
     Active Substance: PIMAVANSERIN TARTRATE
     Indication: Parkinson^s disease psychosis
     Dosage: 34 MILLIGRAM, QD
     Route: 048
     Dates: start: 20221014, end: 20231102
  2. ACETAMINOPHEN [Concomitant]
     Active Substance: ACETAMINOPHEN
     Dosage: 325 MILLIGRAM, 2 CAPSULE EVERY 4 HRS AS NEEDED
     Route: 048
  3. ATROPINE [Concomitant]
     Active Substance: ATROPINE\ATROPINE SULFATE
     Dosage: 1% DROPS, 1 DROP, EVERY 4 HRS AS NEEDED
     Route: 047
  4. CETYLPYRIDINIUM CHLORIDE [Concomitant]
     Active Substance: CETYLPYRIDINIUM CHLORIDE
     Dosage: 15 MILLILITER, BID
     Route: 048
  5. CARBIDOPA\LEVODOPA [Concomitant]
     Active Substance: CARBIDOPA\LEVODOPA
     Dosage: 25-100MG, 1 AND HALF TAB, TID
     Route: 048
  6. CLONAZEPAM [Concomitant]
     Active Substance: CLONAZEPAM
     Dosage: 0.5 MILLIGRAM, BID
     Route: 048
  7. DEBROX [CELECOXIB] [Concomitant]
     Dosage: 6.5% DROPS (4 DROP), AT BEDTIME AS NEEDED INTO AFFECTED EAR
  8. DEXTROMETHORPHAN HYDROBROMIDE [Concomitant]
     Active Substance: DEXTROMETHORPHAN HYDROBROMIDE
     Dosage: (30MG/5ML) 10ML EVERY 12 HRS AS NEEDED
     Route: 048
  9. DULCOLAX (BISACODYL) [Concomitant]
     Active Substance: BISACODYL
     Dosage: (10 MILLIGRAM) 1 SUPPOSITORY, EVERY 72 HRS
     Route: 054
  10. HYDROCORTISONE [Concomitant]
     Active Substance: HYDROCORTISONE
     Dosage: (2.5%), SMALL AMOUNT, BID AS DIRECTED TO AFFECTED AREA
  11. HYOSCYAMINE SULFATE [Concomitant]
     Active Substance: HYOSCYAMINE SULFATE
     Dosage: 0.125MG/ML; 1 ML, EVERY 2 HRS AS NEEDED
     Route: 060
  12. LORAZEPAM [Concomitant]
     Active Substance: LORAZEPAM
     Dosage: 2MG/ML; 0.5ML, 4 TIMES A DAY AND 0.25 ML EVERY 2 HRS AS NEEDED
     Route: 048
  13. LOSARTAN [Concomitant]
     Active Substance: LOSARTAN
     Dosage: 100 MILLIGRAM, QD
     Route: 048
  14. MILK OF MAGNESIA [Concomitant]
     Active Substance: MAGNESIUM HYDROXIDE
     Dosage: (400MG/5ML); 30ML BID AS NEEDED
     Route: 048
  15. MORPHINE [Concomitant]
     Active Substance: MORPHINE
     Dosage: (100MG/5ML); 0.25 ML, 4 TIMES A DAY AS NEEDED
     Route: 048

REACTIONS (1)
  - Dementia [Recovered/Resolved]
